FAERS Safety Report 10724290 (Version 1)
Quarter: 2015Q1

REPORT INFORMATION
  Report Type: Spontaneous
  Country: FR (occurrence: FR)
  Receive Date: 20150120
  Receipt Date: 20150120
  Transmission Date: 20150721
  Serious: Yes (Hospitalization, Other)
  Sender: FDA-Public Use
  Company Number: FR-PFIZER INC-2015014436

PATIENT
  Age: 83 Year
  Sex: Female

DRUGS (14)
  1. XARELTO [Suspect]
     Active Substance: RIVAROXABAN
     Indication: ISCHAEMIC STROKE
     Dosage: 15 MG, 1X/DAY
     Route: 048
     Dates: start: 201407, end: 20141230
  2. LIORESAL [Suspect]
     Active Substance: BACLOFEN
     Dosage: 5 MG, 1X/DAY
     Route: 048
     Dates: start: 201407, end: 20141230
  3. LEVOTHYROX [Concomitant]
     Active Substance: LEVOTHYROXINE
     Dosage: 75 ?G, 1X/DAY
     Route: 048
  4. XARELTO [Suspect]
     Active Substance: RIVAROXABAN
     Indication: ATRIAL FIBRILLATION
  5. LEVOTHYROX [Concomitant]
     Active Substance: LEVOTHYROXINE
     Dosage: 25 ?G, 1X/DAY
     Route: 048
  6. NORSET [Concomitant]
     Active Substance: MIRTAZAPINE
     Dosage: 2 DF, 1X/DAY
     Route: 048
  7. PRETERAX [Concomitant]
     Active Substance: INDAPAMIDE\PERINDOPRIL
     Dosage: UNK
     Dates: start: 201407
  8. DUROGESIC [Suspect]
     Active Substance: FENTANYL
     Dosage: 12 ?G/HOUR (2.1 MG/5.25 CM2), 1 DF, EVERY 3 DAYS
     Route: 062
     Dates: start: 201407, end: 20141230
  9. LASILIX [Concomitant]
     Active Substance: FUROSEMIDE
     Dosage: UNK
     Dates: start: 201407
  10. INEXIUM [Concomitant]
     Active Substance: ESOMEPRAZOLE
     Dosage: 20 MG, 1X/DAY
     Route: 048
     Dates: start: 201407
  11. LYRICA [Suspect]
     Active Substance: PREGABALIN
     Indication: NEURALGIA
     Dosage: 25 MG, 1X/DAY
     Route: 048
     Dates: start: 201409, end: 20141230
  12. LOXEN [Concomitant]
     Active Substance: NICARDIPINE HYDROCHLORIDE
     Dosage: UNK
     Dates: start: 201407
  13. PYOSTACINE [Suspect]
     Active Substance: PRISTINAMYCIN
     Dosage: UNK
     Route: 048
     Dates: start: 20141218, end: 20141230
  14. DUROGESIC [Suspect]
     Active Substance: FENTANYL
     Dosage: 25 ?G/HOUR (4.2 MG/10.5 CM2), 1 DF, EVERY 3 DAYS
     Route: 062
     Dates: start: 201407, end: 20141230

REACTIONS (5)
  - Hypotension [Recovered/Resolved]
  - Myocardial ischaemia [Not Recovered/Not Resolved]
  - Dermatitis contact [Unknown]
  - Drug ineffective [Recovered/Resolved]
  - Erysipelas [Unknown]

NARRATIVE: CASE EVENT DATE: 201409
